FAERS Safety Report 21527089 (Version 20)
Quarter: 2024Q2

REPORT INFORMATION
  Report Type: Report from Study
  Country: CO (occurrence: CO)
  Receive Date: 20221031
  Receipt Date: 20240620
  Transmission Date: 20240716
  Serious: Yes (Other)
  Sender: FDA-Public Use
  Company Number: CO-002147023-NVSC2022CO223101

PATIENT
  Age: 12 Year
  Sex: Male
  Weight: 49 kg

DRUGS (8)
  1. XOLAIR [Suspect]
     Active Substance: OMALIZUMAB
     Indication: Asthma
     Dosage: 450 MG, QMO (ONE DOSE) (3 OF 150 MG)
     Route: 050
     Dates: start: 20220926
  2. XOLAIR [Suspect]
     Active Substance: OMALIZUMAB
     Dosage: 450 MG, BIW (ONCE EVERY 2 WEEKS)
     Route: 050
     Dates: start: 20220626
  3. XOLAIR [Suspect]
     Active Substance: OMALIZUMAB
     Dosage: 525 MG, BIW (ONCE EVERY 2 WEEKS)
     Route: 050
  4. XOLAIR [Suspect]
     Active Substance: OMALIZUMAB
     Route: 050
  5. XOLAIR [Suspect]
     Active Substance: OMALIZUMAB
     Route: 050
     Dates: start: 20230315
  6. XOLAIR [Suspect]
     Active Substance: OMALIZUMAB
     Route: 050
     Dates: start: 20230330
  7. MONTELUKAST [Suspect]
     Active Substance: MONTELUKAST SODIUM
     Indication: Asthma
     Route: 048
  8. CETIRIZINE [Concomitant]
     Active Substance: CETIRIZINE HYDROCHLORIDE
     Indication: Hypersensitivity
     Dosage: UNK, Q24H (SINCE 2 YEARS)
     Route: 065

REACTIONS (21)
  - Asthmatic crisis [Recovered/Resolved]
  - Dyspnoea [Recovered/Resolved]
  - Asthmatic crisis [Unknown]
  - Decreased appetite [Unknown]
  - Asthenia [Unknown]
  - Pyrexia [Unknown]
  - Choking sensation [Recovered/Resolved]
  - Headache [Recovered/Resolved]
  - Nausea [Recovered/Resolved]
  - Application site pain [Recovered/Resolved]
  - Dizziness [Recovered/Resolved]
  - Malaise [Unknown]
  - Illness [Unknown]
  - Fractional exhaled nitric oxide abnormal [Unknown]
  - Abdominal pain [Unknown]
  - Pyrexia [Recovered/Resolved]
  - Pulmonary calcification [Unknown]
  - Alopecia [Unknown]
  - Influenza [Unknown]
  - Diarrhoea [Unknown]
  - Nasal congestion [Unknown]

NARRATIVE: CASE EVENT DATE: 20220926
